FAERS Safety Report 16718007 (Version 3)
Quarter: 2020Q1

REPORT INFORMATION
  Report Type: Report from Study
  Country: FR (occurrence: FR)
  Receive Date: 20190819
  Receipt Date: 20200106
  Transmission Date: 20200409
  Serious: Yes (Hospitalization, Disabling)
  Sender: FDA-Public Use
  Company Number: PHHY2019FR124951

PATIENT
  Age: 47 Year
  Sex: Female
  Weight: 176 kg

DRUGS (12)
  1. MOPRAL [Concomitant]
     Active Substance: OMEPRAZOLE
     Indication: BACK PAIN
     Dosage: 80 MG, QD
     Route: 065
     Dates: start: 20190513, end: 20190514
  2. COUMADINE [Concomitant]
     Active Substance: WARFARIN SODIUM
     Indication: PHLEBITIS
     Dosage: 5 MG, QD
     Route: 065
  3. LYRICA [Concomitant]
     Active Substance: PREGABALIN
     Indication: PAIN
     Dosage: 375 MG, UNK
     Route: 065
     Dates: start: 201808
  4. BYL719 [Suspect]
     Active Substance: ALPELISIB
     Indication: SPINE MALFORMATION
  5. BYL719 [Suspect]
     Active Substance: ALPELISIB
     Indication: PIK3CA RELATED OVERGROWTH SPECTRUM
     Dosage: 100 OT, UNK
     Route: 048
     Dates: start: 20190516
  6. CORTANCYL [Concomitant]
     Active Substance: PREDNISONE
     Dosage: 80 MG, UNK
     Route: 065
     Dates: start: 20190514
  7. GLUCOPHAGE [Concomitant]
     Active Substance: METFORMIN HYDROCHLORIDE
     Indication: HYPERGLYCAEMIA
     Dosage: 500 MG, UNK
     Route: 065
     Dates: start: 20190709
  8. BYL719 [Suspect]
     Active Substance: ALPELISIB
     Indication: VASCULAR MALFORMATION
     Dosage: 250 OT, QD
     Route: 048
     Dates: start: 201905
  9. CORTANCYL [Concomitant]
     Active Substance: PREDNISONE
     Indication: BACK PAIN
     Dosage: 120 MG, UNK
     Route: 065
     Dates: start: 20190513
  10. SEROPLEX [Concomitant]
     Active Substance: ESCITALOPRAM OXALATE
     Indication: AFFECTIVE DISORDER
     Dosage: 10 MG, UNK
     Route: 065
     Dates: start: 201808
  11. CORTANCYL [Concomitant]
     Active Substance: PREDNISONE
     Dosage: 40 MG, UNK
     Route: 065
     Dates: start: 20190515
  12. MOPRAL [Concomitant]
     Active Substance: OMEPRAZOLE
     Dosage: 40 MG, UNK
     Route: 065
     Dates: start: 20190515

REACTIONS (5)
  - Pyogenic granuloma [Recovering/Resolving]
  - Diarrhoea [Recovering/Resolving]
  - Alopecia [Recovering/Resolving]
  - Pruritus [Unknown]
  - Hypertrophy [Recovering/Resolving]

NARRATIVE: CASE EVENT DATE: 20190517
